FAERS Safety Report 17690245 (Version 1)
Quarter: 2020Q2

REPORT INFORMATION
  Report Type: Other
  Country: US (occurrence: US)
  Receive Date: 20200421
  Receipt Date: 20200421
  Transmission Date: 20200714
  Serious: Yes (Other)
  Sender: FDA-Public Use
  Company Number: US-GUTHY-RENKER, LLC-2083039

PATIENT
  Age: 47 Year
  Sex: Female

DRUGS (2)
  1. MEANINGFUL BEAUTY ENVIRONMENTAL PROTECTING MOISTURIZER SPF 30 [Suspect]
     Active Substance: AVOBENZONE\HOMOSALATE\OCTISALATE\OXYBENZONE
     Dates: start: 20200328, end: 20200328
  2. MEANINGFUL BEAUTY CINDY CRAWFORD SKIN BRIGHTENING DECOLLETE AND NECK TREATMENT SPF 15 [Concomitant]
     Active Substance: AVOBENZONE\OCTINOXATE\OCTISALATE\OXYBENZONE
     Dates: start: 20200328, end: 20200328

REACTIONS (1)
  - Hypersensitivity [Recovered/Resolved]
